FAERS Safety Report 5522381-8 (Version None)
Quarter: 2007Q4

REPORT INFORMATION
  Report Type: 
  Country: None (occurrence: None)
  Receive Date: 20071120
  Receipt Date: 20071108
  Transmission Date: 20080405
  Serious: Yes (Hospitalization, Other)
  Sender: FDA-Public Use
  Company Number: US-PFIZER INC-2007085505

PATIENT
  Age: 43 Year
  Sex: Female

DRUGS (9)
  1. ZOLOFT [Suspect]
     Indication: DEPRESSION
     Dates: start: 20010101, end: 20070801
  2. CYMBALTA [Concomitant]
  3. SYNTHROID [Concomitant]
  4. METFORMIN HYDROCHLORIDE [Concomitant]
  5. DOXEPIN HCL [Concomitant]
  6. ESTRATEST [Concomitant]
  7. BYETTA [Concomitant]
  8. ACIPHEX [Concomitant]
  9. LEVSIN [Concomitant]
     Dosage: FREQ:AS NEEDED
     Route: 060

REACTIONS (5)
  - HAEMATOCRIT DECREASED [None]
  - HEPATIC STEATOSIS [None]
  - PANCREATIC MASS [None]
  - PANCREATITIS [None]
  - VOMITING [None]
